FAERS Safety Report 5055230-5 (Version None)
Quarter: 2006Q3

REPORT INFORMATION
  Report Type: 
  Country: None (occurrence: None)
  Receive Date: 20060714
  Receipt Date: 20060704
  Transmission Date: 20061208
  Serious: Yes (Disabling)
  Sender: FDA-Public Use
  Company Number: 2002128326CH

PATIENT
  Age: 55 Year
  Sex: Male
  Weight: 90 kg

DRUGS (4)
  1. IRINOTECAN HCL [Suspect]
     Indication: SMALL CELL LUNG CANCER STAGE UNSPECIFIED
     Dosage: 160 MG (FREQUENCY:  CYCLIC), INTRAVENOUS
     Route: 042
     Dates: start: 20020814, end: 20020925
  2. PLATIBLASTIN S (CISPLATIN) [Suspect]
     Indication: SMALL CELL LUNG CANCER STAGE UNSPECIFIED
     Dosage: SEE IMAGE
     Route: 042
     Dates: start: 20020814, end: 20020911
  3. PLATIBLASTIN S (CISPLATIN) [Suspect]
     Indication: SMALL CELL LUNG CANCER STAGE UNSPECIFIED
     Dosage: SEE IMAGE
     Route: 042
     Dates: start: 20020925, end: 20020925
  4. VIOXX [Concomitant]

REACTIONS (3)
  - DISEASE PROGRESSION [None]
  - MYALGIA [None]
  - PERIPHERAL SENSORY NEUROPATHY [None]
